FAERS Safety Report 8606431-8 (Version None)
Quarter: 2012Q3

REPORT INFORMATION
  Report Type: 
  Country: None (occurrence: None)
  Receive Date: 20120820
  Receipt Date: 20120807
  Transmission Date: 20120928
  Serious: Yes (Hospitalization)
  Sender: FDA-Public Use
  Company Number: IT-COVIDIEN/TYCO HEALTHCARE/MALLINCKRODT-T201203044

PATIENT
  Age: 63 Year

DRUGS (2)
  1. METHADOSE [Suspect]
     Indication: CANCER PAIN
     Dosage: UNK
     Route: 042
  2. OPIOIDS [Concomitant]
     Indication: CANCER PAIN

REACTIONS (1)
  - INTESTINAL OBSTRUCTION [None]
